FAERS Safety Report 9254060 (Version 1)
Quarter: 2013Q2

REPORT INFORMATION
  Report Type: Spontaneous
  Country: US (occurrence: None)
  Receive Date: 20130424
  Receipt Date: 20130424
  Transmission Date: 20140414
  Serious: Yes (Death, Life-Threatening, Hospitalization)
  Sender: FDA-Public Use
  Company Number: None

PATIENT
  Age: 82 Year
  Sex: Female
  Weight: 66 kg

DRUGS (1)
  1. WARFARIN [Suspect]
     Indication: ATRIAL FIBRILLATION
     Dosage: COUMADIN 2.5MG  TUES. FRI   PO?COUMADIN RESTARTED 3MO PRIOR TO FALLS (1/13)
     Route: 048

REACTIONS (5)
  - Fall [None]
  - Contusion [None]
  - Confusional state [None]
  - Condition aggravated [None]
  - International normalised ratio abnormal [None]
